FAERS Safety Report 7907023-6 (Version None)
Quarter: 2011Q4

REPORT INFORMATION
  Report Type: 
  Country: None (occurrence: None)
  Receive Date: 20111109
  Receipt Date: 20111109
  Transmission Date: 20120403
  Serious: Yes (Other)
  Sender: FDA-Public Use
  Company Number: None

PATIENT
  Sex: Female
  Weight: 123.832 kg

DRUGS (2)
  1. AMLODIPINE [Suspect]
     Dosage: 5 MG 1 QD PO
     Route: 048
  2. AMLODIPINE [Suspect]
     Indication: HYPERTENSION
     Dosage: 5 MG 1 QD PO
     Dates: start: 20110101, end: 20110820

REACTIONS (10)
  - DECREASED APPETITE [None]
  - ABDOMINAL PAIN [None]
  - MYALGIA [None]
  - CHEST PAIN [None]
  - YAWNING [None]
  - DRY EYE [None]
  - NAUSEA [None]
  - ASTHENIA [None]
  - PAIN [None]
  - SCRATCH [None]
